FAERS Safety Report 24572214 (Version 1)
Quarter: 2024Q4

REPORT INFORMATION
  Report Type: Spontaneous
  Country: GB (occurrence: GB)
  Receive Date: 20241101
  Receipt Date: 20241101
  Transmission Date: 20250115
  Serious: Yes (Other)
  Sender: PFIZER
  Company Number: GB-PFIZER INC-202400290772

PATIENT
  Age: 31 Year
  Sex: Female

DRUGS (1)
  1. OXBRYTA [Suspect]
     Active Substance: VOXELOTOR
     Dosage: UNK
     Dates: start: 202406, end: 202409

REACTIONS (2)
  - Pulmonary oedema [Unknown]
  - Lung disorder [Unknown]

NARRATIVE: CASE EVENT DATE: 20240701
